FAERS Safety Report 21403750 (Version 3)
Quarter: 2022Q4

REPORT INFORMATION
  Report Type: Spontaneous
  Country: US (occurrence: US)
  Receive Date: 20221003
  Receipt Date: 20221223
  Transmission Date: 20230113
  Serious: No
  Sender: FDA-Public Use
  Company Number: US-BRISTOL-MYERS SQUIBB COMPANY-2022-115067

PATIENT
  Age: 71 Year
  Sex: Male
  Weight: 82 kg

DRUGS (3)
  1. REVLIMID [Suspect]
     Active Substance: LENALIDOMIDE
     Indication: Plasma cell myeloma
     Dosage: DAYS 1-21, THEN OFF FOR 7 DAYS EVERY 28 DAYS
     Route: 048
     Dates: start: 20220707, end: 20220929
  2. REVLIMID [Suspect]
     Active Substance: LENALIDOMIDE
     Dosage: FREQ: DAYS 1-21 ,OFF FOR 7 DAYS EVERY 28 DAYS
     Route: 048
     Dates: start: 20220707, end: 20221020
  3. REVLIMID [Suspect]
     Active Substance: LENALIDOMIDE
     Dosage: DAYS 1-21 FOR 28 DAY CYCLE
     Route: 048
     Dates: start: 20220628, end: 20221024

REACTIONS (1)
  - No adverse event [Unknown]
